FAERS Safety Report 6253477-3 (Version None)
Quarter: 2009Q2

REPORT INFORMATION
  Report Type: 
  Country: None (occurrence: None)
  Receive Date: 20090629
  Receipt Date: 20090629
  Transmission Date: 20091009
  Serious: Yes (Other)
  Sender: FDA-Public Use
  Company Number: None

PATIENT
  Sex: Female
  Weight: 72.5755 kg

DRUGS (1)
  1. ZICAM NASAL SPRAY GEL [Suspect]
     Indication: NASOPHARYNGITIS
     Dosage: AS DIRECTED 2-3 TIMES-PER DAY NASAL
     Route: 045
     Dates: start: 20090402, end: 20090407

REACTIONS (4)
  - AGEUSIA [None]
  - ANOSMIA [None]
  - OROPHARYNGEAL PAIN [None]
  - SINUSITIS [None]
